FAERS Safety Report 18065399 (Version 1)
Quarter: 2020Q3

REPORT INFORMATION
  Report Type: Spontaneous
  Country: US (occurrence: US)
  Receive Date: 20200724
  Receipt Date: 20200724
  Transmission Date: 20201103
  Serious: Yes (Life-Threatening, Other)
  Sender: FDA-Public Use
  Company Number: US-AMERICAN REGENT INC-2020001426

PATIENT
  Age: 28 Year
  Sex: Female

DRUGS (1)
  1. INJECTAFER [Suspect]
     Active Substance: FERRIC CARBOXYMALTOSE
     Indication: IRON DEFICIENCY ANAEMIA
     Dosage: RECEIVED 2 DOSES OF INJECTAFER (750 MICROGRAM/DOSE) (750 MCG, 2 TOTAL)

REACTIONS (3)
  - Underdose [Unknown]
  - Respiratory failure [Unknown]
  - Hypophosphataemia [Recovering/Resolving]
